FAERS Safety Report 18880734 (Version 3)
Quarter: 2021Q1

REPORT INFORMATION
  Report Type: Report from Study
  Country: None (occurrence: DO)
  Receive Date: 20210212
  Receipt Date: 20210325
  Transmission Date: 20210420
  Serious: Yes (Hospitalization)
  Sender: FDA-Public Use
  Company Number: DO-ABBVIE-20K-279-3690572-00

PATIENT
  Age: 12 Year
  Sex: Male
  Weight: 29 kg

DRUGS (2)
  1. METHOTREXATE. [Concomitant]
     Active Substance: METHOTREXATE
     Indication: JUVENILE IDIOPATHIC ARTHRITIS
     Route: 048
  2. HUMIRA [Suspect]
     Active Substance: ADALIMUMAB
     Indication: JUVENILE IDIOPATHIC ARTHRITIS
     Route: 058
     Dates: start: 20190927, end: 20201109

REACTIONS (10)
  - Anaemia [Recovering/Resolving]
  - Amoebiasis [Recovered/Resolved]
  - Nasal injury [Recovering/Resolving]
  - Decreased appetite [Recovering/Resolving]
  - Influenza [Recovered/Resolved]
  - Penis injury [Recovering/Resolving]
  - Diarrhoea [Recovered/Resolved]
  - Urinary tract infection [Recovered/Resolved]
  - Blood iron decreased [Not Recovered/Not Resolved]
  - Abdominal pain upper [Recovering/Resolving]

NARRATIVE: CASE EVENT DATE: 202011
